FAERS Safety Report 8828648 (Version 1)
Quarter: 2012Q4

REPORT INFORMATION
  Report Type: 
  Country: US (occurrence: US)
  Receive Date: 20121005
  Receipt Date: 20121005
  Transmission Date: 20130627
  Serious: Yes (Other)
  Sender: FDA-Public Use
  Company Number: US-BAYER-2012-103592

PATIENT
  Age: 25 Year
  Sex: Female

DRUGS (3)
  1. YAZ [Suspect]
  2. IBUPROFEN [Concomitant]
  3. OMEPRAZOLE [Concomitant]

REACTIONS (1)
  - Deep vein thrombosis [None]
